FAERS Safety Report 25995839 (Version 1)
Quarter: 2025Q4

REPORT INFORMATION
  Report Type: Spontaneous
  Country: US (occurrence: US)
  Receive Date: 20251104
  Receipt Date: 20251104
  Transmission Date: 20260118
  Serious: No
  Sender: Haleon PLC
  Company Number: US-HALEON-2271222

PATIENT
  Age: 50 Year
  Sex: Male

DRUGS (4)
  1. FLUTICASONE [Suspect]
     Active Substance: FLUTICASONE
     Indication: Eosinophilic oesophagitis
     Route: 048
  2. OMEPRAZOLE [Suspect]
     Active Substance: OMEPRAZOLE
     Indication: Dysphagia
  3. OMEPRAZOLE [Suspect]
     Active Substance: OMEPRAZOLE
  4. OMEPRAZOLE [Suspect]
     Active Substance: OMEPRAZOLE

REACTIONS (2)
  - Incorrect route of product administration [Unknown]
  - Therapeutic product effect incomplete [Unknown]
